FAERS Safety Report 22304459 (Version 1)
Quarter: 2023Q2

REPORT INFORMATION
  Report Type: Spontaneous
  Country: US (occurrence: None)
  Receive Date: 20230509
  Receipt Date: 20230509
  Transmission Date: 20230721
  Serious: Yes (Disabling, Other)
  Sender: FDA-Public Use
  Company Number: None

PATIENT
  Age: 43 Year
  Sex: Male
  Weight: 63 kg

DRUGS (1)
  1. HYDROCORTISONE [Suspect]
     Active Substance: HYDROCORTISONE
     Indication: Primary adrenal insufficiency
     Dosage: FREQUENCY : TWICE A DAY;?
     Route: 048
     Dates: start: 20230414, end: 20230504

REACTIONS (8)
  - Product substitution issue [None]
  - Irregular sleep phase [None]
  - Asthenia [None]
  - Decreased appetite [None]
  - Weight decreased [None]
  - Constipation [None]
  - Night sweats [None]
  - Irritability [None]

NARRATIVE: CASE EVENT DATE: 20230501
